FAERS Safety Report 6672075-0 (Version None)
Quarter: 2010Q2

REPORT INFORMATION
  Report Type: 
  Country: None (occurrence: None)
  Receive Date: 20100407
  Receipt Date: 20100407
  Transmission Date: 20101027
  Serious: Yes (Other)
  Sender: FDA-Public Use
  Company Number: None

PATIENT
  Sex: Male
  Weight: 110.2241 kg

DRUGS (1)
  1. TOPIRAMATE [Suspect]
     Indication: ESSENTIAL TREMOR
     Dates: start: 20090401, end: 20091201

REACTIONS (4)
  - APHASIA [None]
  - MEMORY IMPAIRMENT [None]
  - SOMNAMBULISM [None]
  - TREMOR [None]
